FAERS Safety Report 17184154 (Version 1)
Quarter: 2019Q4

REPORT INFORMATION
  Report Type: Spontaneous
  Country: US (occurrence: US)
  Receive Date: 20191126
  Receipt Date: 20191126
  Transmission Date: 20200122
  Serious: No
  Sender: FDA-Public Use
  Company Number: None

PATIENT
  Age: 69 Year
  Sex: Female
  Weight: 64.86 kg

DRUGS (6)
  1. AMOXICILIN-CLAV [Suspect]
     Active Substance: AMOXICILLIN\CLAVULANIC ACID
     Route: 048
  2. ESTRACE [Concomitant]
     Active Substance: ESTRADIOL
  3. VITAMIN D3 [Concomitant]
     Active Substance: CHOLECALCIFEROL
  4. METRONIDAZOLE 500MG [Suspect]
     Active Substance: METRONIDAZOLE
     Indication: DIVERTICULUM
     Route: 048
  5. CENTRUM SILVER [Concomitant]
     Active Substance: MINERALS\VITAMINS
  6. SULFAMETHOXAZOLE-TMP DS TABLET [Suspect]
     Active Substance: SULFAMETHOXAZOLE\TRIMETHOPRIM
     Dosage: ?          QUANTITY:1 DF DOSAGE FORM;?
     Route: 048

REACTIONS (7)
  - Tremor [None]
  - Flatulence [None]
  - Abdominal pain lower [None]
  - Abdominal discomfort [None]
  - Psychomotor hyperactivity [None]
  - Liver disorder [None]
  - Insomnia [None]

NARRATIVE: CASE EVENT DATE: 20190809
